FAERS Safety Report 24090597 (Version 1)
Quarter: 2024Q3

REPORT INFORMATION
  Report Type: Spontaneous
  Country: US (occurrence: None)
  Receive Date: 20240712
  Receipt Date: 20240712
  Transmission Date: 20241017
  Serious: Yes (Life-Threatening, Hospitalization, Disabling)
  Sender: Public
  Company Number: None

PATIENT
  Age: 81 Year
  Sex: 0
  Weight: 63.9 kg

DRUGS (2)
  1. INVEGA [Suspect]
     Active Substance: PALIPERIDONE
     Indication: Schizophrenia
     Dates: start: 20240131, end: 20240225
  2. INVEGA [Suspect]
     Active Substance: PALIPERIDONE
     Indication: Bipolar disorder

REACTIONS (6)
  - Psychiatric symptom [None]
  - Lethargy [None]
  - Incoherent [None]
  - Dysarthria [None]
  - Therapy interrupted [None]
  - Asthenia [None]

NARRATIVE: CASE EVENT DATE: 20240131
